FAERS Safety Report 8450402-1 (Version None)
Quarter: 2012Q2

REPORT INFORMATION
  Report Type: 
  Country: None (occurrence: None)
  Receive Date: 20120614
  Receipt Date: 20120614
  Transmission Date: 20120825
  Serious: Yes (Hospitalization)
  Sender: FDA-Public Use
  Company Number: None

PATIENT
  Sex: Female
  Weight: 63.2 kg

DRUGS (2)
  1. BEVACIZUMAB (RHUMAB VEGF) [Suspect]
     Dosage: 964.5 MG
  2. ERBITUX [Suspect]
     Dosage: 420 MG

REACTIONS (3)
  - DYSARTHRIA [None]
  - CEREBROVASCULAR ACCIDENT [None]
  - GINGIVAL BLEEDING [None]
